FAERS Safety Report 11680428 (Version 3)
Quarter: 2015Q4

REPORT INFORMATION
  Report Type: Spontaneous
  Country: US (occurrence: US)
  Receive Date: 20151027
  Receipt Date: 20151110
  Transmission Date: 20160304
  Serious: No
  Sender: FDA-Public Use
  Company Number: US-ELI_LILLY_AND_COMPANY-US201008008970

PATIENT
  Age: 68 Year
  Sex: Male

DRUGS (4)
  1. FORTEO [Suspect]
     Active Substance: TERIPARATIDE
     Dosage: 20 UG, DAILY (1/D)
  2. FENTANYL. [Concomitant]
     Active Substance: FENTANYL
     Dosage: UNK, UNKNOWN
  3. FORTEO [Suspect]
     Active Substance: TERIPARATIDE
     Indication: OSTEOPOROSIS
     Dosage: 20 UG, DAILY (1/D)
     Dates: start: 20100810
  4. FORTEO [Suspect]
     Active Substance: TERIPARATIDE
     Dosage: 20 UG, DAILY (1/D)

REACTIONS (13)
  - X-ray abnormal [Unknown]
  - Faecaloma [Unknown]
  - Injection site bruising [Unknown]
  - Contusion [Unknown]
  - Rash [Unknown]
  - Erythema [Unknown]
  - Injection site reaction [Unknown]
  - Injection site pain [Unknown]
  - Anal haemorrhage [Unknown]
  - Haemorrhage [Unknown]
  - Constipation [Unknown]
  - Injection site erythema [Not Recovered/Not Resolved]
  - Hearing impaired [Unknown]

NARRATIVE: CASE EVENT DATE: 20100829
